FAERS Safety Report 7721131-4 (Version None)
Quarter: 2011Q3

REPORT INFORMATION
  Report Type: 
  Country: None (occurrence: None)
  Receive Date: 20110831
  Receipt Date: 20110823
  Transmission Date: 20111222
  Serious: Yes (Life-Threatening, Hospitalization, Disabling)
  Sender: FDA-Public Use
  Company Number: GB-ABBOTT-11P-167-0848913-00

PATIENT
  Age: 63 Year
  Sex: Female

DRUGS (17)
  1. CYCLOSPORINE [Interacting]
     Indication: RENAL TRANSPLANT
     Dosage: LONG TERM
     Dates: start: 20110419
  2. LEVOTHYROXINE SODIUM [Concomitant]
     Indication: PRODUCT USED FOR UNKNOWN INDICATION
  3. CYCLOSPORINE [Interacting]
     Route: 048
     Dates: end: 20110426
  4. KLIOVANCE [Concomitant]
     Indication: PRODUCT USED FOR UNKNOWN INDICATION
     Dosage: LONG TERM
     Dates: end: 20110424
  5. CLARITHROMYCIN [Interacting]
     Indication: RENAL TRANSPLANT
  6. COLCHINE [Interacting]
     Indication: GOUT
     Route: 048
     Dates: start: 20110224, end: 20110424
  7. AUGMENTIN '125' [Concomitant]
     Indication: PRODUCT USED FOR UNKNOWN INDICATION
     Dates: start: 20110423, end: 20110423
  8. LEVETIRACETAM [Concomitant]
     Indication: PRODUCT USED FOR UNKNOWN INDICATION
     Dosage: LONG TERM
  9. ALLOPURINOL [Concomitant]
     Indication: GOUT
     Route: 048
  10. MONONIDINE [Concomitant]
     Indication: HYPERTENSION
     Dosage: LONG TERM
     Route: 048
  11. METRONIDAZOLE [Concomitant]
     Indication: GASTROINTESTINAL INFECTION
     Route: 042
     Dates: start: 20110423, end: 20110424
  12. CLARITHROMYCIN [Suspect]
     Indication: PNEUMONIA
     Dosage: INDICATED FOR POSSIBLE BYT NOT PROVEN PNEUMONIA
     Route: 048
     Dates: start: 20110423, end: 20110428
  13. DOTHIEPIN HYDROCHLORIDE [Concomitant]
     Indication: GOUT
     Route: 048
  14. HYOSCINE [Concomitant]
     Indication: PRODUCT USED FOR UNKNOWN INDICATION
  15. TENORMIN [Concomitant]
     Indication: HYPERTENSION
     Dosage: LONG TERM
     Route: 048
  16. PIPERACILLIN AND TAZOBACTAM [Concomitant]
     Indication: PNEUMONIA
     Route: 042
     Dates: start: 20110424, end: 20110425
  17. ACETAMINOPHEN [Concomitant]
     Indication: PRODUCT USED FOR UNKNOWN INDICATION
     Dosage: LONG TERM
     Route: 048

REACTIONS (14)
  - METABOLIC ACIDOSIS [None]
  - MALAISE [None]
  - PARAPARESIS [None]
  - ASTHENIA [None]
  - BLOOD CALCIUM DECREASED [None]
  - NEUROPATHY PERIPHERAL [None]
  - GUILLAIN-BARRE SYNDROME [None]
  - PANCYTOPENIA [None]
  - DRUG INTERACTION [None]
  - NAUSEA [None]
  - VOMITING [None]
  - RENAL FAILURE ACUTE [None]
  - BLOOD CREATINE PHOSPHOKINASE INCREASED [None]
  - DIARRHOEA [None]
